FAERS Safety Report 13424810 (Version 2)
Quarter: 2017Q2

REPORT INFORMATION
  Report Type: Report from Study
  Country: US (occurrence: US)
  Receive Date: 20170410
  Receipt Date: 20170414
  Transmission Date: 20170830
  Serious: Yes (Hospitalization)
  Sender: FDA-Public Use
  Company Number: US-SEATTLE GENETICS-2017SGN00894

PATIENT

DRUGS (15)
  1. LENALIDOMIDE [Suspect]
     Active Substance: LENALIDOMIDE
     Indication: DIFFUSE LARGE B-CELL LYMPHOMA
     Dosage: 20 MG, QCYCLE
     Route: 048
     Dates: start: 20170329, end: 20170405
  2. FEXOFENADINE [Concomitant]
     Active Substance: FEXOFENADINE\FEXOFENADINE HYDROCHLORIDE
  3. COMPAZINE                          /00013302/ [Concomitant]
     Active Substance: PROCHLORPERAZINE EDISYLATE
  4. METOPROLOL. [Concomitant]
     Active Substance: METOPROLOL
  5. ONDANSETRON [Concomitant]
     Active Substance: ONDANSETRON
  6. CYMBALTA [Concomitant]
     Active Substance: DULOXETINE HYDROCHLORIDE
  7. ASPIRIN                            /00002701/ [Concomitant]
     Active Substance: ASPIRIN
  8. GABAPENTIN. [Concomitant]
     Active Substance: GABAPENTIN
  9. LASIX [Concomitant]
     Active Substance: FUROSEMIDE
  10. BRENTUXIMAB VEDOTIN [Suspect]
     Active Substance: BRENTUXIMAB VEDOTIN
     Indication: DIFFUSE LARGE B-CELL LYMPHOMA
     Dosage: 1.2 MG/KG, Q21D
     Route: 042
     Dates: start: 20170329, end: 20170329
  11. BACLOFEN. [Concomitant]
     Active Substance: BACLOFEN
  12. PAXIL [Concomitant]
     Active Substance: PAROXETINE HYDROCHLORIDE
  13. MULTIVITAMIN                       /00097801/ [Concomitant]
     Active Substance: VITAMINS
  14. VITAMIN D [Concomitant]
     Active Substance: CHOLECALCIFEROL
     Dosage: 1000 IU, UNK
     Route: 048
  15. FLOMAX [Concomitant]
     Active Substance: TAMSULOSIN HYDROCHLORIDE

REACTIONS (1)
  - Hypercalcaemia [Unknown]

NARRATIVE: CASE EVENT DATE: 20170405
